FAERS Safety Report 7679578 (Version 3)
Quarter: 2013Q2

REPORT INFORMATION
  Report Type: Spontaneous
  Country: US (occurrence: US)
  Receive Date: 20101123
  Receipt Date: 20130531
  Transmission Date: 20140414
  Serious: Yes (Congenital Anomaly)
  Sender: FDA-Public Use
  Company Number: US-US-EMD SERONO, INC.-7028117

PATIENT
  Sex: Female
  Weight: 3 kg

DRUGS (1)
  1. REBIF [Suspect]
     Indication: MULTIPLE SCLEROSIS
     Route: 064
     Dates: start: 2003

REACTIONS (3)
  - Encephalomalacia [Recovered/Resolved]
  - Microcephaly [Recovered/Resolved]
  - Foetal exposure during pregnancy [Recovered/Resolved]
